FAERS Safety Report 6370760-1 (Version None)
Quarter: 2009Q3

REPORT INFORMATION
  Report Type: 
  Country: None (occurrence: None)
  Receive Date: 20090923
  Receipt Date: 20071119
  Transmission Date: 20100115
  Serious: Yes (Other)
  Sender: FDA-Public Use
  Company Number: US-ASTRAZENECA-2006UW25929

PATIENT
  Sex: Male
  Weight: 90.7 kg

DRUGS (13)
  1. SEROQUEL [Suspect]
     Indication: BIPOLAR DISORDER
     Dosage: 50 MG-400 MG DAILY
     Route: 048
     Dates: start: 20040308
  2. SEROQUEL [Suspect]
     Indication: DEPRESSION
     Dosage: 50 MG-400 MG DAILY
     Route: 048
     Dates: start: 20040308
  3. SEROQUEL [Suspect]
     Indication: INTERMITTENT EXPLOSIVE DISORDER
     Dosage: 50 MG-400 MG DAILY
     Route: 048
     Dates: start: 20040308
  4. SEROQUEL [Suspect]
     Indication: ANTISOCIAL PERSONALITY DISORDER
     Dosage: 50 MG-400 MG DAILY
     Route: 048
     Dates: start: 20040308
  5. SEROQUEL [Suspect]
     Route: 048
  6. SEROQUEL [Suspect]
     Route: 048
  7. SEROQUEL [Suspect]
     Route: 048
  8. SEROQUEL [Suspect]
     Route: 048
  9. RISPERIDONE [Concomitant]
  10. AVALIDE [Concomitant]
     Indication: HYPERTENSION
     Dates: start: 20070829
  11. XANAX [Concomitant]
     Indication: ANXIETY
     Route: 048
  12. SILDENAFIL CITRATE [Concomitant]
     Route: 048
     Dates: start: 20040416
  13. TEGRETOL [Concomitant]
     Dates: start: 19920104

REACTIONS (1)
  - PANCREATITIS [None]
